FAERS Safety Report 19636388 (Version 1)
Quarter: 2021Q3

REPORT INFORMATION
  Report Type: Spontaneous
  Country: US (occurrence: US)
  Receive Date: 20210730
  Receipt Date: 20210730
  Transmission Date: 20211014
  Serious: Yes (Other)
  Sender: FDA-Public Use
  Company Number: None

PATIENT
  Age: 57 Year
  Sex: Male

DRUGS (1)
  1. REBIF REBIDOSE [Suspect]
     Active Substance: INTERFERON BETA-1A
     Dosage: ?          OTHER STRENGTH:44MCG/0.5ML;?
     Route: 058
     Dates: start: 202007, end: 202107

REACTIONS (4)
  - Paraesthesia [None]
  - Central nervous system lesion [None]
  - Bell^s palsy [None]
  - Multiple sclerosis [None]

NARRATIVE: CASE EVENT DATE: 20210709
